FAERS Safety Report 8235193-1 (Version None)
Quarter: 2012Q1

REPORT INFORMATION
  Report Type: 
  Country: None (occurrence: None)
  Receive Date: 20120326
  Receipt Date: 20120322
  Transmission Date: 20120608
  Serious: Yes (Death)
  Sender: FDA-Public Use
  Company Number: US-JNJFOC-20120311751

PATIENT
  Age: 7 Decade
  Sex: Female

DRUGS (1)
  1. REOPRO [Suspect]
     Indication: STENT PLACEMENT
     Route: 065

REACTIONS (1)
  - HAEMORRHAGE INTRACRANIAL [None]
